FAERS Safety Report 19918777 (Version 1)
Quarter: 2021Q4

REPORT INFORMATION
  Report Type: Spontaneous
  Country: CN (occurrence: CN)
  Receive Date: 20211004
  Receipt Date: 20211004
  Transmission Date: 20220303
  Serious: Yes (Other)
  Sender: FDA-Public Use
  Company Number: CN-ELI_LILLY_AND_COMPANY-CN202109009852

PATIENT
  Age: 69 Year
  Sex: Female
  Weight: 59 kg

DRUGS (4)
  1. HUMULIN 70/30 [Suspect]
     Active Substance: INSULIN HUMAN
     Indication: Type 2 diabetes mellitus
     Dosage: 16 INTERNATIONAL UNIT, EACH MORNING
     Route: 058
     Dates: start: 1999
  2. HUMULIN 70/30 [Suspect]
     Active Substance: INSULIN HUMAN
     Dosage: 18 INTERNATIONAL UNIT, EACH EVENING
     Route: 058
     Dates: start: 1999
  3. NOVORAPID [Concomitant]
     Active Substance: INSULIN ASPART
     Indication: Type 2 diabetes mellitus
     Route: 058
  4. INSULIN GLARGINE [Concomitant]
     Active Substance: INSULIN GLARGINE
     Indication: Type 2 diabetes mellitus
     Dosage: 12 INTERNATIONAL UNIT, DAILY
     Route: 058
     Dates: start: 2011

REACTIONS (4)
  - Eye haemangioma [Unknown]
  - Retinal haemorrhage [Unknown]
  - Blood glucose abnormal [Unknown]
  - Cataract [Unknown]

NARRATIVE: CASE EVENT DATE: 20060101
